FAERS Safety Report 9517138 (Version 2)
Quarter: 2013Q4

REPORT INFORMATION
  Report Type: Spontaneous
  Country: US (occurrence: US)
  Receive Date: 20130911
  Receipt Date: 20131126
  Transmission Date: 20140711
  Serious: No
  Sender: FDA-Public Use
  Company Number: US-JNJFOC-20130904246

PATIENT
  Sex: 0

DRUGS (1)
  1. INVEGA [Suspect]
     Indication: BODY DYSMORPHIC DISORDER
     Route: 048
     Dates: start: 201209, end: 201302

REACTIONS (7)
  - Emotional disorder [Unknown]
  - Weight increased [Unknown]
  - Gynaecomastia [Unknown]
  - Anger [Unknown]
  - Frustration [Unknown]
  - Off label use [Unknown]
  - Aggression [Unknown]
